FAERS Safety Report 17353663 (Version 1)
Quarter: 2020Q1

REPORT INFORMATION
  Report Type: Spontaneous
  Country: US (occurrence: US)
  Receive Date: 20200131
  Receipt Date: 20200131
  Transmission Date: 20200409
  Serious: No
  Sender: FDA-Public Use
  Company Number: US-GLAXOSMITHKLINE-US2020AMR012143

PATIENT
  Sex: Female

DRUGS (1)
  1. NUCALA [Suspect]
     Active Substance: MEPOLIZUMAB
     Indication: ASTHMA
     Dosage: 100 MG
     Route: 065

REACTIONS (6)
  - Condition aggravated [Unknown]
  - Hypoaesthesia [Unknown]
  - Ear disorder [Unknown]
  - Nonspecific reaction [Unknown]
  - Pruritus [Unknown]
  - Skin irritation [Unknown]
